FAERS Safety Report 4979982-5 (Version None)
Quarter: 2006Q2

REPORT INFORMATION
  Report Type: 
  Country: None (occurrence: None)
  Receive Date: 20060421
  Receipt Date: 20051014
  Transmission Date: 20061013
  Serious: Yes (Hospitalization)
  Sender: FDA-Public Use
  Company Number: US-MERCK-0510USA07527

PATIENT
  Age: 67 Year
  Sex: Male
  Weight: 109 kg

DRUGS (2)
  1. VIOXX [Suspect]
     Indication: OSTEOARTHRITIS
     Route: 048
     Dates: start: 20000203, end: 20000418
  2. VIOXX [Suspect]
     Route: 048
     Dates: start: 20000418, end: 20010930

REACTIONS (22)
  - ADVERSE EVENT [None]
  - ARTHRALGIA [None]
  - BENIGN PROSTATIC HYPERPLASIA [None]
  - BLOOD CHOLESTEROL INCREASED [None]
  - BRAIN STEM INFARCTION [None]
  - CEREBRAL ISCHAEMIA [None]
  - CONFUSIONAL STATE [None]
  - DEHYDRATION [None]
  - DEPRESSION [None]
  - DIABETES MELLITUS NON-INSULIN-DEPENDENT [None]
  - DIABETIC NEUROPATHY [None]
  - FALL [None]
  - GASTROOESOPHAGEAL REFLUX DISEASE [None]
  - HEADACHE [None]
  - HYPERTENSION [None]
  - INJURY [None]
  - NECK PAIN [None]
  - NEPHROLITHIASIS [None]
  - RENAL CYST [None]
  - RENAL FAILURE ACUTE [None]
  - URINARY TRACT INFECTION [None]
  - VASCULAR ENCEPHALOPATHY [None]
